FAERS Safety Report 4893151-9 (Version None)
Quarter: 2005Q4

REPORT INFORMATION
  Report Type: 
  Country: None (occurrence: None)
  Receive Date: 20051223
  Receipt Date: 20051101
  Transmission Date: 20060501
  Serious: No
  Sender: FDA-Public Use
  Company Number: 219096

PATIENT
  Age: 38 Year
  Sex: Male

DRUGS (2)
  1. AVASTIN [Suspect]
     Indication: GLIOBLASTOMA
     Dosage: 5MG/KG, Q2W
     Dates: start: 20050811
  2. IRINOTECAN HCL [Suspect]
     Indication: GLIOBLASTOMA

REACTIONS (1)
  - HEADACHE [None]
